FAERS Safety Report 8886764 (Version 3)
Quarter: 2013Q1

REPORT INFORMATION
  Report Type: Spontaneous
  Country: CA (occurrence: CA)
  Receive Date: 20121105
  Receipt Date: 20130205
  Transmission Date: 20140127
  Serious: Yes (Other)
  Sender: FDA-Public Use
  Company Number: PHHY2012CA099580

PATIENT
  Sex: Female

DRUGS (3)
  1. TEGRETOL [Suspect]
     Route: 048
  2. DAYQUIL [Concomitant]
  3. TRI-CYCLEN [Concomitant]

REACTIONS (4)
  - Epilepsy [Unknown]
  - Nausea [Unknown]
  - Rash [Unknown]
  - Drug ineffective [Unknown]
